FAERS Safety Report 6496801-9 (Version None)
Quarter: 2009Q4

REPORT INFORMATION
  Report Type: 
  Country: None (occurrence: None)
  Receive Date: 20091125
  Receipt Date: 20090402
  Transmission Date: 20100525
  Serious: Yes (Hospitalization)
  Sender: FDA-Public Use
  Company Number: 2009BH005298

PATIENT
  Age: 70 Year
  Sex: Female

DRUGS (11)
  1. DIANEAL [Suspect]
     Indication: PERITONEAL DIALYSIS
     Dosage: 8 L; EVERY DAY; IP
     Route: 033
     Dates: start: 20010101
  2. AMLODIPINE [Concomitant]
  3. RENAGEL [Concomitant]
  4. ZEMPLAR [Concomitant]
  5. ATENOLOL [Concomitant]
  6. CLONIDINE [Concomitant]
  7. DIATREX [Concomitant]
  8. VALSARTAN [Concomitant]
  9. LASIX [Concomitant]
  10. ATORVASTATIN [Concomitant]
  11. MINOXIDIL [Concomitant]

REACTIONS (1)
  - PERITONITIS BACTERIAL [None]
